FAERS Safety Report 10228161 (Version 1)
Quarter: 2014Q1

REPORT INFORMATION
  Report Type: Spontaneous
  Country: US (occurrence: None)
  Receive Date: 20140306
  Receipt Date: 20140306
  Transmission Date: 20141002
  Serious: Yes (Other)
  Sender: FDA-Public Use
  Company Number: 163-21880-13053361

PATIENT
  Age: 88 Year
  Sex: Female

DRUGS (11)
  1. REVLIMID (LENALIDOMIDE) (10 MILLIGRAM, CAPSULES) [Suspect]
     Indication: PLASMA CELL MYELOMA
     Dosage: 10 MG , 21 IN 21 D,  PO 03/17/2008 - 04/ 2009 THERAPY DATES
     Route: 048
     Dates: start: 20080317, end: 200904
  2. AMLODIPINE BESYLATE (AMLODIPINE BESILATE) [Concomitant]
  3. ATORVASTATIN CALCIUM (ATORVASTATIN CALCIUM( [Concomitant]
  4. BENZONATATE (BENZONATATE) [Concomitant]
  5. CALCIUM (CALCIUM) [Concomitant]
  6. ESTRACE (ESTRADIOL) [Concomitant]
  7. FELODIPINE (FELODIPINE) [Concomitant]
  8. VITAMIN D (ERGOCALCIFEROL) [Concomitant]
  9. BONIVA (IBANDRONATE SODIUM) [Concomitant]
  10. ARANESP (DARBEPOETIN ALFA) [Concomitant]
  11. PROBIOTIC (BIFIDOBACTERIUM LACTIS) [Concomitant]

REACTIONS (2)
  - Pancytopenia [None]
  - Bronchitis [None]
